FAERS Safety Report 7547145-5 (Version None)
Quarter: 2011Q2

REPORT INFORMATION
  Report Type: 
  Country: None (occurrence: None)
  Receive Date: 20110614
  Receipt Date: 20110609
  Transmission Date: 20111010
  Serious: Yes (Death)
  Sender: FDA-Public Use
  Company Number: PHHY2011IT50592

PATIENT
  Sex: Female

DRUGS (2)
  1. ZOMETA [Suspect]
     Dates: start: 20020301
  2. AREDIA [Suspect]
     Dates: start: 20020301

REACTIONS (1)
  - DEATH [None]
